FAERS Safety Report 7631345-X (Version None)
Quarter: 2011Q3

REPORT INFORMATION
  Report Type: 
  Country: None (occurrence: None)
  Receive Date: 20110701
  Receipt Date: 20110225
  Transmission Date: 20111222
  Serious: Yes (Hospitalization)
  Sender: FDA-Public Use
  Company Number: 7044539

PATIENT
  Age: 64 Year
  Sex: Female
  Weight: 91 kg

DRUGS (5)
  1. BACLOFEN [Concomitant]
  2. VITAMIN B12 [Concomitant]
  3. FOSAMAX [Concomitant]
  4. REBIF [Suspect]
     Indication: MULTIPLE SCLEROSIS
     Dosage: 44 MCG, 3 IN 1 WK, SUBCUTANEOUS
     Route: 058
     Dates: start: 20081106, end: 20110101
  5. VITAMIN D [Concomitant]

REACTIONS (2)
  - MULTIPLE SCLEROSIS RELAPSE [None]
  - DRUG INEFFECTIVE [None]
